FAERS Safety Report 24130619 (Version 5)
Quarter: 2025Q2

REPORT INFORMATION
  Report Type: Spontaneous
  Country: IT (occurrence: IT)
  Receive Date: 20240724
  Receipt Date: 20250620
  Transmission Date: 20250716
  Serious: Yes (Hospitalization, Other)
  Sender: AUROBINDO
  Company Number: IT-JNJFOC-20240720833

PATIENT
  Age: 72 Year
  Sex: Male
  Weight: 70.18 kg

DRUGS (25)
  1. LEVOLEUCOVORIN [Suspect]
     Active Substance: LEVOLEUCOVORIN
     Indication: HER2 positive colorectal cancer
     Route: 042
     Dates: start: 20240523, end: 20240618
  2. LEVOLEUCOVORIN [Suspect]
     Active Substance: LEVOLEUCOVORIN
     Route: 042
     Dates: start: 20240523, end: 20240624
  3. OXALIPLATIN [Suspect]
     Active Substance: OXALIPLATIN
     Indication: HER2 positive colorectal cancer
     Route: 065
  4. OXALIPLATIN [Suspect]
     Active Substance: OXALIPLATIN
     Route: 042
     Dates: start: 20240523, end: 20240618
  5. OXALIPLATIN [Suspect]
     Active Substance: OXALIPLATIN
     Route: 065
  6. OXALIPLATIN [Suspect]
     Active Substance: OXALIPLATIN
     Route: 042
     Dates: start: 20240523, end: 20240624
  7. LOPERAMIDE [Suspect]
     Active Substance: LOPERAMIDE
     Indication: HER2 positive colorectal cancer
     Dosage: 4 MILLIGRAM, TWO TIMES A DAY 0.33
     Route: 065
     Dates: start: 20240523, end: 20240605
  8. LOPERAMIDE [Suspect]
     Active Substance: LOPERAMIDE
     Dosage: 4 MILLIGRAM, 3 TIMES A DAY, 0.5
     Route: 065
     Dates: start: 20240606
  9. LOPERAMIDE [Suspect]
     Active Substance: LOPERAMIDE
     Dosage: 12 MILLIGRAM, ONCE A DAY
     Route: 065
     Dates: start: 20240523, end: 20240623
  10. LOPERAMIDE [Suspect]
     Active Substance: LOPERAMIDE
     Dosage: 8 MILLIGRAM, ONCE A DAY 4 MG, BID DAY 15
     Route: 065
  11. FLUOROURACIL [Suspect]
     Active Substance: FLUOROURACIL
     Indication: HER2 positive colorectal cancer
     Route: 042
     Dates: start: 20240523, end: 20240618
  12. FLUOROURACIL [Suspect]
     Active Substance: FLUOROURACIL
     Route: 042
     Dates: start: 20240618
  13. FLUOROURACIL [Suspect]
     Active Substance: FLUOROURACIL
     Route: 040
     Dates: start: 20240523, end: 20240624
  14. FLUOROURACIL [Suspect]
     Active Substance: FLUOROURACIL
     Route: 040
     Dates: start: 20240523, end: 20240624
  15. FLUOROURACIL [Suspect]
     Active Substance: FLUOROURACIL
     Route: 065
  16. FLUOROURACIL [Suspect]
     Active Substance: FLUOROURACIL
     Route: 065
  17. TRASTUZUMAB [Suspect]
     Active Substance: TRASTUZUMAB
     Indication: HER2 positive colorectal cancer
     Route: 042
     Dates: start: 20240523, end: 20240523
  18. TRASTUZUMAB [Suspect]
     Active Substance: TRASTUZUMAB
     Dosage: 560 MILLIGRAM, ONCE A DAY
     Route: 065
     Dates: start: 20240523, end: 20240624
  19. TUCATINIB [Suspect]
     Active Substance: TUCATINIB
     Indication: HER2 positive colorectal cancer
     Dosage: 300 MILLIGRAM, TWO TIMES A DAY
     Route: 048
     Dates: start: 20240523, end: 20240623
  20. TUCATINIB [Suspect]
     Active Substance: TUCATINIB
     Route: 042
  21. TUCATINIB [Suspect]
     Active Substance: TUCATINIB
     Route: 065
  22. TUCATINIB [Suspect]
     Active Substance: TUCATINIB
     Dosage: 600 MILLIGRAM, ONCE A DAY
     Route: 048
     Dates: start: 20240523, end: 20240623
  23. LEVOLEUCOVORIN CALCIUM [Suspect]
     Active Substance: LEVOLEUCOVORIN CALCIUM
     Indication: HER2 positive colorectal cancer
     Route: 042
     Dates: start: 20240523, end: 20240624
  24. EMPAGLIFLOZIN [Concomitant]
     Active Substance: EMPAGLIFLOZIN
     Indication: Product used for unknown indication
     Route: 065
     Dates: start: 2014, end: 20240624
  25. METFORMIN [Concomitant]
     Active Substance: METFORMIN HYDROCHLORIDE
     Indication: Product used for unknown indication
     Route: 065
     Dates: start: 2014, end: 20240624

REACTIONS (4)
  - Acute kidney injury [Recovered/Resolved]
  - Blood creatinine increased [Recovered/Resolved]
  - Off label use [Unknown]
  - Nausea [Not Recovered/Not Resolved]

NARRATIVE: CASE EVENT DATE: 20240523
